FAERS Safety Report 7750377-4 (Version None)
Quarter: 2011Q3

REPORT INFORMATION
  Report Type: 
  Country: None (occurrence: None)
  Receive Date: 20110912
  Receipt Date: 20110901
  Transmission Date: 20111222
  Serious: Yes (Disabling)
  Sender: FDA-Public Use
  Company Number: OSCN-NO-1002S-0054

PATIENT
  Age: 58 Year
  Sex: Male
  Weight: 69.5 kg

DRUGS (6)
  1. POLYSTYRENE SULFONATE (RESONIUM) 9SODIUM POLYSTYRENE SULFONATE) [Concomitant]
  2. GADOLINIUM (UNSPECIFIED) (GADOLINIUM) [Suspect]
     Indication: PRODUCT USED FOR UNKNOWN INDICATION
     Dosage: NR, SINGLE DOSE, INTRAVENOUS
     Route: 042
     Dates: start: 20030311, end: 20030311
  3. SOTALOL HCL [Concomitant]
  4. RAMIPRIL (TRIATEC) (RAMIPRIL) [Concomitant]
  5. ALFACALCIDOL (ETALPHA) (ALFACALCIDOL) [Concomitant]
  6. CALCIUM CARBONATE [Concomitant]

REACTIONS (4)
  - GAIT DISTURBANCE [None]
  - NEPHROGENIC SYSTEMIC FIBROSIS [None]
  - RESTLESSNESS [None]
  - INSOMNIA [None]
